FAERS Safety Report 8999579 (Version 1)
Quarter: 2013Q1

REPORT INFORMATION
  Report Type: Spontaneous
  Country: US (occurrence: US)
  Receive Date: 20130102
  Receipt Date: 20130102
  Transmission Date: 20140127
  Serious: No
  Sender: FDA-Public Use
  Company Number: US-AMGEN-USASP2012081596

PATIENT
  Age: 64 Year
  Sex: Female

DRUGS (8)
  1. ENBREL [Suspect]
     Indication: PRODUCT USED FOR UNKNOWN INDICATION
     Dosage: 50 MG, 2 TIMES/WK
     Dates: start: 20121214
  2. SINGULAR [Concomitant]
     Dosage: UNK
  3. CLOBETASOL [Concomitant]
     Dosage: UNK
  4. DYAZIDE [Concomitant]
     Dosage: UNK
  5. GRAPE SEED [Concomitant]
     Dosage: UNK
  6. ZYRTEC [Concomitant]
     Dosage: UNK
  7. CALCIUM [Concomitant]
     Dosage: UNK
  8. VITAMIN D /00107901/ [Concomitant]
     Dosage: UNK

REACTIONS (4)
  - Chest discomfort [Unknown]
  - Joint swelling [Unknown]
  - Paraesthesia [Unknown]
  - Psoriasis [Unknown]
